FAERS Safety Report 7206610-0 (Version None)
Quarter: 2011Q1

REPORT INFORMATION
  Report Type: 
  Country: None (occurrence: None)
  Receive Date: 20110103
  Receipt Date: 20101228
  Transmission Date: 20110831
  Serious: Yes (Hospitalization)
  Sender: FDA-Public Use
  Company Number: US-JNJFOC-20100706025

PATIENT
  Sex: Female
  Weight: 55.79 kg

DRUGS (7)
  1. FENTANYL-100 [Suspect]
     Indication: BACK PAIN
     Route: 062
  2. DYAZIDE [Concomitant]
     Indication: BLOOD PRESSURE
     Route: 048
  3. FENTANYL-100 [Suspect]
     Indication: BACK PAIN
     Route: 062
  4. INDERAL [Concomitant]
     Indication: CARDIAC DISORDER
     Route: 048
  5. DYAZIDE [Concomitant]
     Indication: CARDIAC DISORDER
     Route: 048
  6. INDERAL [Concomitant]
     Indication: BLOOD PRESSURE
     Route: 048
  7. COUMADIN [Concomitant]
     Indication: CARDIAC DISORDER
     Route: 048

REACTIONS (2)
  - HOSPITALISATION [None]
  - INADEQUATE ANALGESIA [None]
